FAERS Safety Report 6752691-8 (Version None)
Quarter: 2010Q2

REPORT INFORMATION
  Report Type: 
  Country: None (occurrence: None)
  Receive Date: 20100601
  Receipt Date: 20100601
  Transmission Date: 20101027
  Serious: Yes (Life-Threatening, Hospitalization)
  Sender: FDA-Public Use
  Company Number: None

PATIENT
  Sex: Female
  Weight: 65.7716 kg

DRUGS (2)
  1. CYMBALTA [Suspect]
     Indication: MAJOR DEPRESSION
     Dosage: 2 QHS PO
     Route: 048
     Dates: start: 20040101, end: 20100527
  2. CYMBALTA [Suspect]
     Indication: PAIN
     Dosage: 2 QHS PO
     Route: 048
     Dates: start: 20040101, end: 20100527

REACTIONS (4)
  - HYPONATRAEMIA [None]
  - IMPAIRED WORK ABILITY [None]
  - UNEVALUABLE EVENT [None]
  - VISUAL IMPAIRMENT [None]
